FAERS Safety Report 15481681 (Version 8)
Quarter: 2025Q1

REPORT INFORMATION
  Report Type: Spontaneous
  Country: ES (occurrence: ES)
  Receive Date: 20181010
  Receipt Date: 20250312
  Transmission Date: 20250409
  Serious: Yes (Other)
  Sender: AUROBINDO
  Company Number: ES-AUROBINDO-AUR-APL-2018-049255

PATIENT
  Age: 48 Year
  Sex: Female

DRUGS (1)
  1. OMEPRAZOLE [Suspect]
     Active Substance: OMEPRAZOLE
     Indication: Prophylaxis
     Route: 065

REACTIONS (8)
  - Symmetrical drug-related intertriginous and flexural exanthema [Recovered/Resolved]
  - Toxic skin eruption [Recovered/Resolved]
  - Intentional product misuse [Recovered/Resolved]
  - Intentional overdose [Recovered/Resolved]
  - Drug abuse [Unknown]
  - Rash maculo-papular [Recovered/Resolved]
  - Skin lesion [Recovered/Resolved]
  - Skin toxicity [Recovered/Resolved]
